FAERS Safety Report 9734991 (Version 4)
Quarter: 2014Q2

REPORT INFORMATION
  Report Type: Report from Study
  Country: BR (occurrence: BR)
  Receive Date: 20131206
  Receipt Date: 20140402
  Transmission Date: 20141212
  Serious: Yes (Other)
  Sender: FDA-Public Use
  Company Number: BR-ROCHE-1311634

PATIENT
  Sex: Female
  Weight: 75 kg

DRUGS (9)
  1. ACTEMRA [Suspect]
     Indication: RHEUMATOID ARTHRITIS
     Dosage: LATEST INFUSION ON NOV/2013
     Route: 042
     Dates: start: 20130925
  2. LOSARTAN [Concomitant]
  3. DEPURA [Concomitant]
  4. ARAVA [Concomitant]
     Indication: RHEUMATOID ARTHRITIS
  5. NAPROXEN [Concomitant]
     Indication: RHEUMATOID ARTHRITIS
     Route: 065
  6. HUMIRA [Concomitant]
     Indication: RHEUMATOID ARTHRITIS
  7. ENBREL [Concomitant]
     Indication: RHEUMATOID ARTHRITIS
     Dosage: 8 AMPOULES
     Route: 065
  8. CHLOROQUINE [Concomitant]
  9. METHOTREXATE [Concomitant]

REACTIONS (9)
  - Visual acuity reduced [Unknown]
  - Headache [Recovered/Resolved]
  - Dry mouth [Recovered/Resolved]
  - Dry eye [Recovered/Resolved]
  - Burning sensation [Unknown]
  - Pruritus [Unknown]
  - Rheumatoid factor increased [Recovering/Resolving]
  - Pain [Unknown]
  - C-reactive protein increased [Unknown]
